FAERS Safety Report 9330318 (Version 4)
Quarter: 2017Q3

REPORT INFORMATION
  Report Type: Report from Study
  Country: CA (occurrence: CA)
  Receive Date: 20130605
  Receipt Date: 20170707
  Transmission Date: 20171128
  Serious: Yes (Other)
  Sender: FDA-Public Use
  Company Number: CA-ROCHE-1231835

PATIENT
  Sex: Female
  Weight: 55 kg

DRUGS (7)
  1. DIPHENHYDRAMINE HCL [Concomitant]
     Active Substance: DIPHENHYDRAMINE HYDROCHLORIDE
     Indication: PREMEDICATION
     Route: 048
     Dates: start: 20100324, end: 20150227
  2. TYLENOL [Concomitant]
     Active Substance: ACETAMINOPHEN
  3. ALEVE [Concomitant]
     Active Substance: NAPROXEN SODIUM
  4. RITUXAN [Suspect]
     Active Substance: RITUXIMAB
     Indication: RHEUMATOID ARTHRITIS
     Dosage: LAST DOSE PRIOR TO SAE: 10/AUG/2012
     Route: 042
     Dates: start: 20100324, end: 20150227
  5. METHYLPREDNISOLONE. [Concomitant]
     Active Substance: METHYLPREDNISOLONE
     Indication: PREMEDICATION
     Route: 042
     Dates: start: 20100324, end: 20150227
  6. PROLIA [Concomitant]
     Active Substance: DENOSUMAB
  7. ACETAMINOPHEN. [Concomitant]
     Active Substance: ACETAMINOPHEN
     Indication: PREMEDICATION
     Route: 048
     Dates: start: 20100324, end: 20150227

REACTIONS (4)
  - Osteoporosis [Not Recovered/Not Resolved]
  - Arthropathy [Not Recovered/Not Resolved]
  - Lung infection [Unknown]
  - Osteoarthritis [Not Recovered/Not Resolved]

NARRATIVE: CASE EVENT DATE: 2013
